FAERS Safety Report 17817515 (Version 1)
Quarter: 2020Q2

REPORT INFORMATION
  Report Type: Spontaneous
  Country: DE (occurrence: DE)
  Receive Date: 20200522
  Receipt Date: 20200522
  Transmission Date: 20200714
  Serious: Yes (Other)
  Sender: FDA-Public Use
  Company Number: NVSC2020DE135536

PATIENT
  Age: 14 Year
  Sex: Male
  Weight: 40 kg

DRUGS (2)
  1. MYCOPHENOLATE MOFETIL. [Suspect]
     Active Substance: MYCOPHENOLATE MOFETIL
     Indication: PEMPHIGUS
     Dosage: 1.5 G
     Route: 065
     Dates: start: 200206
  2. METHYLPREDNISOLONE. [Suspect]
     Active Substance: METHYLPREDNISOLONE
     Indication: PEMPHIGUS
     Dosage: 20 MG, QD
     Route: 048
     Dates: start: 200206

REACTIONS (8)
  - Cushingoid [Recovered/Resolved]
  - Drug ineffective [Unknown]
  - Superinfection bacterial [Recovered/Resolved]
  - Growth retardation [Recovered/Resolved]
  - Behaviour disorder [Recovered/Resolved]
  - Osteopenia [Recovered/Resolved]
  - Product use in unapproved indication [Unknown]
  - Gastrointestinal candidiasis [Recovered/Resolved]
